FAERS Safety Report 12391199 (Version 1)
Quarter: 2016Q2

REPORT INFORMATION
  Report Type: Spontaneous
  Country: US (occurrence: US)
  Receive Date: 20160520
  Receipt Date: 20160520
  Transmission Date: 20160815
  Serious: Yes (Other)
  Sender: FDA-Public Use
  Company Number: ALCN2016US003417

PATIENT

DRUGS (3)
  1. POLY B SULFATE/TRIMETHOPRIM [Suspect]
     Active Substance: POLYMYXIN B SULFATE\TRIMETHOPRIM
     Indication: INFECTIVE KERATITIS
     Dosage: UNK GTT, UNK
     Route: 047
  2. TOBRAMYCIN//TOBRAMYCIN SULFATE [Concomitant]
     Indication: INFECTIVE KERATITIS
     Dosage: UNK
     Route: 065
  3. MOXIFLOXACIN. [Suspect]
     Active Substance: MOXIFLOXACIN
     Indication: INFECTIVE KERATITIS
     Dosage: UNK GTT, UNK
     Route: 047

REACTIONS (2)
  - Drug ineffective [Recovered/Resolved with Sequelae]
  - Product use issue [Recovered/Resolved with Sequelae]
